FAERS Safety Report 12961324 (Version 1)
Quarter: 2016Q4

REPORT INFORMATION
  Report Type: Report from Study
  Country: US (occurrence: US)
  Receive Date: 20161121
  Receipt Date: 20161121
  Transmission Date: 20170207
  Serious: Yes (Hospitalization, Other)
  Sender: FDA-Public Use
  Company Number: US-PFIZER INC-2016529008

PATIENT
  Age: 59 Year
  Sex: Male
  Weight: 109 kg

DRUGS (9)
  1. PALBOCICLIB [Suspect]
     Active Substance: PALBOCICLIB
     Indication: MANTLE CELL LYMPHOMA
     Dosage: 100 MG QD ON DAYS 1-21
     Route: 048
     Dates: start: 20160415, end: 20160625
  2. PALBOCICLIB [Suspect]
     Active Substance: PALBOCICLIB
     Dosage: UNK
     Route: 048
     Dates: start: 20160629, end: 20160629
  3. IBRUTINIB [Suspect]
     Active Substance: IBRUTINIB
     Indication: MANTLE CELL LYMPHOMA
     Dosage: 560 MG QD
     Route: 048
     Dates: start: 20160415, end: 20160625
  4. ATORVASTATIN [Concomitant]
     Active Substance: ATORVASTATIN
  5. IBRUTINIB [Suspect]
     Active Substance: IBRUTINIB
     Dosage: UNK
     Route: 048
     Dates: start: 20160629, end: 20160701
  6. ACYCLOVIR /00587301/ [Concomitant]
     Active Substance: ACYCLOVIR
  7. CARVEDILOL. [Concomitant]
     Active Substance: CARVEDILOL
  8. ASPIRIN /00002701/ [Concomitant]
     Active Substance: ASPIRIN
  9. CALCIUM CARBONATE. [Concomitant]
     Active Substance: CALCIUM CARBONATE

REACTIONS (4)
  - Ejection fraction decreased [Recovered/Resolved with Sequelae]
  - Atrial flutter [Recovered/Resolved with Sequelae]
  - Dyspnoea [Recovered/Resolved with Sequelae]
  - Fatigue [Recovered/Resolved with Sequelae]

NARRATIVE: CASE EVENT DATE: 20160621
